FAERS Safety Report 8217238-8 (Version None)
Quarter: 2012Q1

REPORT INFORMATION
  Report Type: 
  Country: None (occurrence: None)
  Receive Date: 20120315
  Receipt Date: 20120301
  Transmission Date: 20120608
  Serious: Yes (Other)
  Sender: FDA-Public Use
  Company Number: 2012P1008603

PATIENT
  Age: 4 Year
  Sex: Female

DRUGS (1)
  1. AMOXICILLIN AND CLAVULANATE POTASSIUM [Suspect]
     Indication: EAR INFECTION
     Dosage: 600/85.5 MG;BID
     Dates: start: 20101129, end: 20101201

REACTIONS (2)
  - URTICARIA [None]
  - COUGH [None]
